FAERS Safety Report 15556511 (Version 3)
Quarter: 2020Q2

REPORT INFORMATION
  Report Type: Report from Study
  Country: US (occurrence: US)
  Receive Date: 20181026
  Receipt Date: 20200508
  Transmission Date: 20200713
  Serious: Yes (Hospitalization)
  Sender: FDA-Public Use
  Company Number: US-EISAI MEDICAL RESEARCH-EC-2018-037396

PATIENT
  Age: 79 Year
  Sex: Female
  Weight: 62.6 kg

DRUGS (4)
  1. LENVIMA [Suspect]
     Active Substance: LENVATINIB
     Indication: THYROID CANCER
     Route: 048
     Dates: start: 201803, end: 201806
  2. LENVIMA [Suspect]
     Active Substance: LENVATINIB
     Route: 048
     Dates: start: 20180815
  3. LENVIMA [Suspect]
     Active Substance: LENVATINIB
     Route: 048
     Dates: start: 201806, end: 20180812
  4. LENVIMA [Suspect]
     Active Substance: LENVATINIB
     Route: 048
     Dates: end: 202004

REACTIONS (16)
  - Diarrhoea [Not Recovered/Not Resolved]
  - Back pain [Not Recovered/Not Resolved]
  - Nausea [Recovering/Resolving]
  - Malaise [Not Recovered/Not Resolved]
  - Headache [Unknown]
  - Peripheral swelling [Unknown]
  - Dysphonia [Unknown]
  - Vomiting [Not Recovered/Not Resolved]
  - Musculoskeletal pain [Not Recovered/Not Resolved]
  - Constipation [Not Recovered/Not Resolved]
  - Fall [Not Recovered/Not Resolved]
  - Nail infection [Not Recovered/Not Resolved]
  - Musculoskeletal chest pain [Unknown]
  - Dizziness [Recovered/Resolved]
  - Oral pain [Unknown]
  - Blood pressure increased [Not Recovered/Not Resolved]

NARRATIVE: CASE EVENT DATE: 2018
